FAERS Safety Report 4565015-1 (Version None)
Quarter: 2005Q1

REPORT INFORMATION
  Report Type: 
  Country: None (occurrence: None)
  Receive Date: 20050126
  Receipt Date: 20050117
  Transmission Date: 20050727
  Serious: Yes (Death)
  Sender: FDA-Public Use
  Company Number: 2005016732

PATIENT
  Age: 7 Year
  Sex: Male

DRUGS (1)
  1. GENOTROPIN [Suspect]
     Indication: PRADER-WILLI SYNDROME
     Dosage: 4.7 I.U. (4.7 I.U., DAILY), SUBCUTANEOUS
     Route: 058
     Dates: start: 20040810

REACTIONS (1)
  - DEATH [None]
